FAERS Safety Report 9336388 (Version 1)
Quarter: 2013Q2

REPORT INFORMATION
  Report Type: Spontaneous
  Country: US (occurrence: US)
  Receive Date: 20130607
  Receipt Date: 20130607
  Transmission Date: 20140414
  Serious: Yes (Death, Life-Threatening, Other)
  Sender: FDA-Public Use
  Company Number: US-TEVA-410059USA

PATIENT
  Age: 90 Year
  Sex: Female
  Weight: 67.65 kg

DRUGS (10)
  1. ONDANSETRON [Suspect]
     Dosage: ONE TIME
     Route: 042
  2. PICO-SALAX [Suspect]
     Indication: BOWEL PREPARATION
     Dosage: FIRST DOSE AT 12:30, SECOND DOSE AT 19:00
     Dates: start: 20130509, end: 20130509
  3. OMEPRAZOLE [Concomitant]
  4. FOSAMAX [Concomitant]
  5. LISINOPRIL [Concomitant]
  6. SIMVASTATIN [Concomitant]
  7. ALENDRONATE SODIUM [Concomitant]
  8. VITAMIN C [Concomitant]
  9. CALCIUM WITH VITAMIN D [Concomitant]
  10. CENTRUM [Concomitant]

REACTIONS (4)
  - Cardiac arrest [Fatal]
  - Lacunar infarction [Unknown]
  - Convulsion [Unknown]
  - Atrial fibrillation [Unknown]
